FAERS Safety Report 5907840-8 (Version None)
Quarter: 2008Q4

REPORT INFORMATION
  Report Type: 
  Country: None (occurrence: None)
  Receive Date: 20081003
  Receipt Date: 20080926
  Transmission Date: 20090506
  Serious: Yes (Hospitalization)
  Sender: FDA-Public Use
  Company Number: PHHO2008GB09924

PATIENT
  Sex: Female
  Weight: 85.3 kg

DRUGS (2)
  1. CGS 20267 T30748+ [Suspect]
     Indication: BREAST CANCER
     Dosage: 2.5 MG, QD
     Route: 048
     Dates: start: 20040423
  2. ZOLEDRONIC ACID [Suspect]
     Dosage: 4 MG, 6 MONTHLY
     Route: 042

REACTIONS (1)
  - ATRIAL FIBRILLATION [None]
